FAERS Safety Report 7094151-3 (Version None)
Quarter: 2010Q4

REPORT INFORMATION
  Report Type: 
  Country: None (occurrence: None)
  Receive Date: 20101110
  Receipt Date: 20101029
  Transmission Date: 20110411
  Serious: Yes (Life-Threatening, Other)
  Sender: FDA-Public Use
  Company Number: IT-GENZYME-POMP-1001053

PATIENT
  Sex: Male

DRUGS (5)
  1. MYOZYME [Suspect]
     Indication: GLYCOGEN STORAGE DISEASE TYPE II
     Dosage: 150 MG, Q2W
     Route: 042
     Dates: start: 20100808, end: 20100808
  2. LANOXIN [Concomitant]
     Indication: HYPERTROPHIC CARDIOMYOPATHY
     Dosage: 0.3 MG, UNK
     Route: 048
     Dates: start: 20100108
  3. ANTRA [Concomitant]
     Indication: PROPHYLAXIS AGAINST GASTROINTESTINAL ULCER
     Dosage: 10 MG, UNK
     Route: 048
     Dates: start: 20100723, end: 20100808
  4. DIFLUCAN [Concomitant]
     Indication: GASTROINTESTINAL CANDIDIASIS
     Dosage: 70 MG, UNK
     Route: 048
     Dates: start: 20100804, end: 20100808
  5. MYCOSTATIN [Concomitant]
     Indication: STOMATITIS
     Dosage: 15 ML, UNK
     Route: 048
     Dates: start: 20100807, end: 20100808

REACTIONS (4)
  - ADVERSE EVENT [None]
  - CYANOSIS [None]
  - HYPERTENSION [None]
  - HYPERTHERMIA [None]
